FAERS Safety Report 21197034 (Version 2)
Quarter: 2022Q3

REPORT INFORMATION
  Report Type: Spontaneous
  Country: JP (occurrence: JP)
  Receive Date: 20220810
  Receipt Date: 20220817
  Transmission Date: 20221027
  Serious: Yes (Death, Other)
  Sender: FDA-Public Use
  Company Number: JP-GILEAD-2022-0590523

PATIENT
  Age: 82 Year
  Sex: Male

DRUGS (2)
  1. VEMLIDY [Suspect]
     Active Substance: TENOFOVIR ALAFENAMIDE FUMARATE
     Indication: Hepatitis B
     Dosage: 25 MG
     Route: 048
  2. CEFIXIME [Concomitant]
     Active Substance: CEFIXIME
     Route: 048

REACTIONS (2)
  - Hepatitis B [Fatal]
  - Renal impairment [Unknown]

NARRATIVE: CASE EVENT DATE: 20220719
